FAERS Safety Report 20429376 (Version 3)
Quarter: 2022Q4

REPORT INFORMATION
  Report Type: Spontaneous
  Country: CA (occurrence: CA)
  Receive Date: 20220204
  Receipt Date: 20221025
  Transmission Date: 20230112
  Serious: Yes (Other)
  Sender: FDA-Public Use
  Company Number: CA-CELLTRION INC.-2021CA006139

PATIENT

DRUGS (7)
  1. INFLECTRA [Suspect]
     Active Substance: INFLIXIMAB-DYYB
     Indication: Ankylosing spondylitis
     Dosage: 3 MG/KG Q 0, 2 , 6 WEEK DOSE, THEN Q 8 WEEKS
     Route: 042
  2. INFLECTRA [Suspect]
     Active Substance: INFLIXIMAB-DYYB
     Dosage: 3 MG/KG Q 0, 2 , 6 WEEK DOSE, THEN Q 8 WEEKS
     Route: 042
     Dates: start: 20210603
  3. INFLECTRA [Suspect]
     Active Substance: INFLIXIMAB-DYYB
     Dosage: 3 MG/KG Q 0, 2 , 6 WEEK DOSE, THEN Q 8 WEEKS
     Route: 042
     Dates: start: 20210615
  4. INFLECTRA [Suspect]
     Active Substance: INFLIXIMAB-DYYB
     Dosage: 3 MG/KG Q 0, 2 , 6 WEEK DOSE, THEN Q 8 WEEKS
     Route: 042
     Dates: start: 20210713
  5. INFLECTRA [Suspect]
     Active Substance: INFLIXIMAB-DYYB
     Dosage: 3 MG/KG, RE-INDUCTION Q 0, 4, 8 WEEKS, THEN EVERY 8 WEEKS
     Route: 042
     Dates: start: 20211223
  6. INFLECTRA [Suspect]
     Active Substance: INFLIXIMAB-DYYB
     Dosage: 3 MG/KG, RE-INDUCTION Q 0, 4, 8 WEEKS, THEN EVERY 8 WEEKS
     Route: 042
     Dates: start: 20220125
  7. INFLECTRA [Suspect]
     Active Substance: INFLIXIMAB-DYYB
     Dosage: 3 MG/KG, RE-INDUCTION Q 0, 4, 8 WEEKS, THEN EVERY 8 WEEKS
     Route: 042
     Dates: start: 20220629

REACTIONS (19)
  - Ectopic pregnancy [Recovered/Resolved]
  - Substance abuse [Unknown]
  - Maternal exposure during pregnancy [Unknown]
  - Off label use [Unknown]
  - Off label use [Unknown]
  - Off label use [Unknown]
  - Off label use [Unknown]
  - Intentional product use issue [Unknown]
  - Inappropriate schedule of product administration [Unknown]
  - Product dose omission issue [Unknown]
  - Blood pressure diastolic decreased [Unknown]
  - C-reactive protein increased [Unknown]
  - Red blood cell sedimentation rate increased [Unknown]
  - Heart rate increased [Unknown]
  - Dehydration [Unknown]
  - Fatigue [Recovered/Resolved]
  - Pain [Not Recovered/Not Resolved]
  - Treatment noncompliance [Unknown]
  - Symptom recurrence [Unknown]

NARRATIVE: CASE EVENT DATE: 20200309
